FAERS Safety Report 4489936-3 (Version None)
Quarter: 2004Q4

REPORT INFORMATION
  Report Type: 
  Country: None (occurrence: None)
  Receive Date: 20041025
  Receipt Date: 20041012
  Transmission Date: 20050328
  Serious: Yes (Hospitalization, Other)
  Sender: FDA-Public Use
  Company Number: 2004071943

PATIENT
  Sex: Female
  Weight: 67.586 kg

DRUGS (3)
  1. NARDIL [Suspect]
     Indication: DEPRESSION
     Dosage: 60 MG (15 MG, 2 IN 1 D), ORAL
     Route: 048
  2. CLONAZEPAM [Concomitant]
  3. LEVOTHYROXINE SODIUM [Concomitant]

REACTIONS (6)
  - DRY SOCKET [None]
  - FALL [None]
  - HEAD INJURY [None]
  - NIGHTMARE [None]
  - TOOTHACHE [None]
  - WEIGHT DECREASED [None]
